FAERS Safety Report 23734841 (Version 2)
Quarter: 2024Q2

REPORT INFORMATION
  Report Type: Spontaneous
  Country: GR (occurrence: GR)
  Receive Date: 20240412
  Receipt Date: 20240419
  Transmission Date: 20240716
  Serious: Yes (Other)
  Sender: FDA-Public Use
  Company Number: GR-GILEAD-2024-0668827

PATIENT
  Age: 59 Year
  Sex: Male

DRUGS (7)
  1. BIKTARVY [Suspect]
     Active Substance: BICTEGRAVIR SODIUM\EMTRICITABINE\TENOFOVIR ALAFENAMIDE FUMARATE
     Indication: HIV infection
     Dosage: UNK
     Route: 065
  2. GANCICLOVIR [Concomitant]
     Active Substance: GANCICLOVIR
  3. DOXORUBICIN HYDROCHLORIDE [Concomitant]
     Active Substance: DOXORUBICIN HYDROCHLORIDE
  4. VALGANCICLOVIR [Concomitant]
     Active Substance: VALGANCICLOVIR
  5. PACLITAXEL [Concomitant]
     Active Substance: PACLITAXEL
  6. MARIBAVIR [Concomitant]
     Active Substance: MARIBAVIR
  7. LETERMOVIR [Concomitant]
     Active Substance: LETERMOVIR

REACTIONS (2)
  - Kaposi^s sarcoma [Unknown]
  - Immune reconstitution inflammatory syndrome [Unknown]
